FAERS Safety Report 7408062-4 (Version None)
Quarter: 2011Q2

REPORT INFORMATION
  Report Type: 
  Country: None (occurrence: None)
  Receive Date: 20110412
  Receipt Date: 20100628
  Transmission Date: 20111010
  Serious: No
  Sender: FDA-Public Use
  Company Number: US-PFIZER INC-2010081267

PATIENT
  Sex: Female
  Weight: 59 kg

DRUGS (7)
  1. DOXEPIN [Concomitant]
     Dosage: 47 MG, 1X/DAY
  2. CELEXA [Concomitant]
     Dosage: 10MG/5ML SOLUTION 5.5ML ONCE A DAY
  3. ATIVAN [Concomitant]
     Dosage: 6 MG, 1X/DAY
  4. ZOLOFT [Suspect]
     Indication: DEPRESSION
     Dosage: 2.5 ML, 1X/DAY
     Dates: start: 20080101
  5. ZOLOFT [Suspect]
     Indication: ANXIETY
  6. VERAPAMIL [Concomitant]
     Dosage: 280 MG, UNK
  7. LOPRESSOR [Concomitant]
     Dosage: 50 MG, UNK

REACTIONS (1)
  - SEDATION [None]
